FAERS Safety Report 9247313 (Version 1)
Quarter: 2013Q2

REPORT INFORMATION
  Report Type: Spontaneous
  Country: US (occurrence: US)
  Receive Date: 20130423
  Receipt Date: 20130423
  Transmission Date: 20140414
  Serious: No
  Sender: FDA-Public Use
  Company Number: US-009507513-1304USA009443

PATIENT
  Sex: Female

DRUGS (13)
  1. ZOCOR [Suspect]
     Indication: BLOOD CHOLESTEROL ABNORMAL
     Route: 048
  2. TRAMADOL HYDROCHLORIDE [Suspect]
     Indication: HERPES ZOSTER
  3. LIDODERM [Suspect]
     Indication: HERPES ZOSTER
     Route: 061
  4. VICODIN [Suspect]
     Indication: HERPES ZOSTER
  5. LIPITOR [Suspect]
     Indication: BLOOD CHOLESTEROL ABNORMAL
  6. OXYMORPHONE HYDROCHLORIDE [Suspect]
     Indication: HERPES ZOSTER
  7. GABAPENTIN [Suspect]
     Indication: HERPES ZOSTER
  8. YEAST [Suspect]
     Indication: BLOOD CHOLESTEROL ABNORMAL
  9. CHOLESTYRAMINE RESIN [Suspect]
     Indication: BLOOD CHOLESTEROL ABNORMAL
  10. CRESTOR [Suspect]
     Indication: BLOOD CHOLESTEROL ABNORMAL
  11. MEVACOR TABLET [Suspect]
     Indication: BLOOD CHOLESTEROL ABNORMAL
  12. PRAVACHOL [Suspect]
     Indication: BLOOD CHOLESTEROL ABNORMAL
  13. OXYCODONE [Suspect]
     Indication: HERPES ZOSTER

REACTIONS (2)
  - Dizziness [Unknown]
  - Malaise [Unknown]
